FAERS Safety Report 7230254-8 (Version None)
Quarter: 2011Q1

REPORT INFORMATION
  Report Type: 
  Country: None (occurrence: None)
  Receive Date: 20110118
  Receipt Date: 20110106
  Transmission Date: 20110831
  Serious: Yes (Other)
  Sender: FDA-Public Use
  Company Number: US-PFIZER INC-2010124298

PATIENT
  Sex: Male

DRUGS (1)
  1. CHANTIX [Suspect]
     Indication: SMOKING CESSATION THERAPY
     Dosage: UNK
     Dates: start: 20070701, end: 20071001

REACTIONS (13)
  - SUICIDE ATTEMPT [None]
  - ABNORMAL DREAMS [None]
  - DEPRESSION [None]
  - AGITATION [None]
  - PANIC ATTACK [None]
  - ANXIETY [None]
  - DISTURBANCE IN ATTENTION [None]
  - AMNESIA [None]
  - SUICIDAL IDEATION [None]
  - HEADACHE [None]
  - AGGRESSION [None]
  - HOMICIDAL IDEATION [None]
  - APATHY [None]
